FAERS Safety Report 24434802 (Version 1)
Quarter: 2024Q4

REPORT INFORMATION
  Report Type: Report from Study
  Country: PR (occurrence: PR)
  Receive Date: 20241014
  Receipt Date: 20241014
  Transmission Date: 20250114
  Serious: Yes (Hospitalization)
  Sender: EISAI
  Company Number: PR-Eisai-EC-2024-169900

PATIENT
  Age: 66 Year
  Sex: Male
  Weight: 70.3 kg

DRUGS (2)
  1. LENVIMA [Suspect]
     Active Substance: LENVATINIB
     Indication: Bladder cancer
     Route: 048
     Dates: start: 20240621, end: 20240924
  2. LENVIMA [Suspect]
     Active Substance: LENVATINIB
     Indication: Hepatic cancer
     Route: 048
     Dates: start: 20240925

REACTIONS (7)
  - Joint swelling [Recovering/Resolving]
  - Blood magnesium abnormal [Recovering/Resolving]
  - Ejection fraction decreased [Recovering/Resolving]
  - Blood potassium decreased [Recovering/Resolving]
  - Palpitations [Unknown]
  - Dehydration [Unknown]
  - Weight decreased [Unknown]

NARRATIVE: CASE EVENT DATE: 20240101
